FAERS Safety Report 12885451 (Version 1)
Quarter: 2016Q4

REPORT INFORMATION
  Report Type: Spontaneous
  Country: US (occurrence: US)
  Receive Date: 20161026
  Receipt Date: 20161026
  Transmission Date: 20170207
  Serious: No
  Sender: FDA-Public Use
  Company Number: US-GLAXOSMITHKLINE-US2016157465

PATIENT
  Age: 62 Year
  Sex: Male

DRUGS (1)
  1. TRANSDERM SCOP [Suspect]
     Active Substance: SCOPOLAMINE
     Indication: MOTION SICKNESS
     Dosage: UNK

REACTIONS (6)
  - Emergency care examination [Unknown]
  - Hypersensitivity [Recovered/Resolved]
  - Wrong technique in product usage process [Unknown]
  - Pharyngeal oedema [Recovered/Resolved]
  - Eye swelling [Recovered/Resolved]
  - Circumstance or information capable of leading to medication error [Unknown]

NARRATIVE: CASE EVENT DATE: 20161011
